FAERS Safety Report 7762368-8 (Version None)
Quarter: 2011Q3

REPORT INFORMATION
  Report Type: 
  Country: None (occurrence: None)
  Receive Date: 20110919
  Receipt Date: 20110919
  Transmission Date: 20111222
  Serious: Yes (Other)
  Sender: FDA-Public Use
  Company Number: None

PATIENT
  Sex: Male
  Weight: 119.7496 kg

DRUGS (2)
  1. CIPROFLOXACIN [Suspect]
     Indication: SINUSITIS
     Dosage: 500G BID PO
     Route: 048
     Dates: start: 20091201
  2. CIPROFLOXACIN [Suspect]
     Indication: EAR INFECTION
     Dosage: 500G BID PO
     Route: 048
     Dates: start: 20091201

REACTIONS (5)
  - PRURITUS [None]
  - DIZZINESS [None]
  - URTICARIA [None]
  - FOOD ALLERGY [None]
  - NAUSEA [None]
